FAERS Safety Report 21838332 (Version 3)
Quarter: 2023Q1

REPORT INFORMATION
  Report Type: Spontaneous
  Country: US (occurrence: US)
  Receive Date: 20230109
  Receipt Date: 20230208
  Transmission Date: 20230418
  Serious: No
  Sender: FDA-Public Use
  Company Number: US-PFIZER INC-202300003337

PATIENT
  Age: 14 Year
  Sex: Male
  Weight: 42.64 kg

DRUGS (1)
  1. GENOTROPIN [Suspect]
     Active Substance: SOMATROPIN
     Indication: Short stature
     Dosage: 1 MG/DAY
     Dates: start: 20221222

REACTIONS (2)
  - Device use error [Unknown]
  - Drug dose omission by device [Unknown]
